FAERS Safety Report 16981332 (Version 2)
Quarter: 2020Q1

REPORT INFORMATION
  Report Type: Report from Study
  Country: None (occurrence: US)
  Receive Date: 20191031
  Receipt Date: 20200224
  Transmission Date: 20200409
  Serious: Yes (Other)
  Sender: FDA-Public Use
  Company Number: US-ABBVIE-19K-163-2700925-00

PATIENT
  Sex: Female
  Weight: 90.8 kg

DRUGS (4)
  1. PREDNISONE. [Concomitant]
     Active Substance: PREDNISONE
     Indication: PRODUCT USED FOR UNKNOWN INDICATION
  2. HUMIRA [Suspect]
     Active Substance: ADALIMUMAB
     Indication: UVEITIS
     Route: 058
  3. HUMIRA [Suspect]
     Active Substance: ADALIMUMAB
     Route: 058
  4. HUMIRA [Suspect]
     Active Substance: ADALIMUMAB
     Dosage: DOSE INCREASED
     Route: 058
     Dates: start: 201907

REACTIONS (11)
  - Gout [Recovering/Resolving]
  - Arthralgia [Recovered/Resolved]
  - Fatigue [Unknown]
  - Arthralgia [Unknown]
  - Visual impairment [Not Recovered/Not Resolved]
  - Staphylococcal infection [Recovering/Resolving]
  - Infection [Recovering/Resolving]
  - Autoimmune retinopathy [Not Recovered/Not Resolved]
  - Therapeutic product effect decreased [Unknown]
  - Renal function test abnormal [Unknown]
  - Eye injury [Unknown]
